FAERS Safety Report 5247831-6 (Version None)
Quarter: 2007Q1

REPORT INFORMATION
  Report Type: 
  Country: None (occurrence: None)
  Receive Date: 20070223
  Receipt Date: 20070207
  Transmission Date: 20070707
  Serious: Yes (Death)
  Sender: FDA-Public Use
  Company Number: PHBS2007AT02339

PATIENT

DRUGS (4)
  1. SANDIMMUNE [Suspect]
     Indication: RENAL TRANSPLANT
     Route: 065
  2. CERTICAN [Suspect]
     Indication: RENAL TRANSPLANT
     Dosage: 3 MG/D
     Route: 065
  3. CERTICAN [Suspect]
     Dosage: 2 MG/D
     Route: 065
  4. CERTICAN [Suspect]
     Dosage: 1 MG/D
     Route: 065

REACTIONS (4)
  - BLOOD TRIGLYCERIDES INCREASED [None]
  - HAEMOGLOBIN DECREASED [None]
  - LYMPHOMA [None]
  - WHITE BLOOD CELL COUNT INCREASED [None]
